FAERS Safety Report 9656903 (Version 2)
Quarter: 2013Q4

REPORT INFORMATION
  Report Type: Spontaneous
  Country: ES (occurrence: ES)
  Receive Date: 20131030
  Receipt Date: 20131030
  Transmission Date: 20140711
  Serious: Yes (Other)
  Sender: FDA-Public Use
  Company Number: PHHY2013ES113758

PATIENT
  Age: 57 Year
  Sex: Female

DRUGS (7)
  1. OLANZAPINE [Suspect]
  2. CITALOPRAM [Suspect]
  3. ESCITALOPRAM [Suspect]
  4. VENLAFAXINE [Suspect]
  5. ENALAPRIL [Suspect]
  6. HALOPERIDOL [Suspect]
  7. THIAZIDES [Suspect]

REACTIONS (1)
  - Hyponatraemia [Unknown]
